FAERS Safety Report 6547017-9 (Version None)
Quarter: 2010Q1

REPORT INFORMATION
  Report Type: 
  Country: None (occurrence: None)
  Receive Date: 20100122
  Receipt Date: 20100107
  Transmission Date: 20100710
  Serious: Yes (Hospitalization)
  Sender: FDA-Public Use
  Company Number: B0628027A

PATIENT

DRUGS (3)
  1. HYCAMTIN [Suspect]
     Dosage: 2.3MGM2 PER DAY
     Route: 048
     Dates: start: 20100104, end: 20100105
  2. ETOPOSIDE [Concomitant]
  3. CARBOPLATIN [Concomitant]

REACTIONS (1)
  - INTESTINAL PERFORATION [None]
